FAERS Safety Report 6105481-3 (Version None)
Quarter: 2009Q1

REPORT INFORMATION
  Report Type: 
  Country: None (occurrence: None)
  Receive Date: 20090306
  Receipt Date: 20090227
  Transmission Date: 20090719
  Serious: Yes (Hospitalization)
  Sender: FDA-Public Use
  Company Number: A0771632A

PATIENT
  Age: 68 Year
  Sex: Male
  Weight: 77.3 kg

DRUGS (8)
  1. AVANDIA [Suspect]
     Indication: DIABETES MELLITUS
     Dosage: 4MG TWICE PER DAY
     Route: 048
     Dates: start: 20000101, end: 20080801
  2. AMBIEN [Concomitant]
  3. PROMETHAZINE HCL AND CODEINE [Concomitant]
  4. ADVAIR HFA [Concomitant]
  5. TEKTURNA [Concomitant]
  6. ZYRTEC [Concomitant]
  7. POTASSIUM CHLORIDE [Concomitant]
  8. CETIRIZINE [Concomitant]

REACTIONS (4)
  - CARDIAC DISORDER [None]
  - CARDIAC FAILURE CONGESTIVE [None]
  - CARDIOMYOPATHY [None]
  - CEREBROVASCULAR ACCIDENT [None]
